FAERS Safety Report 25769182 (Version 2)
Quarter: 2025Q4

REPORT INFORMATION
  Report Type: Spontaneous
  Country: US (occurrence: US)
  Receive Date: 20250905
  Receipt Date: 20251119
  Transmission Date: 20260117
  Serious: No
  Sender: BRISTOL-MYERS SQUIBB COMPANY
  Company Number: US-BRISTOL-MYERS SQUIBB COMPANY-2025-123282

PATIENT
  Age: 67 Year
  Sex: Female

DRUGS (1)
  1. KRAZATI [Suspect]
     Active Substance: ADAGRASIB
     Indication: Product used for unknown indication
     Dosage: TAKE 3 TABLETS BY MOUTH TWICE DAILY.?DOSE: 3 TABS (600 MG)
     Route: 048

REACTIONS (2)
  - Renal disorder [Unknown]
  - Illness [Unknown]
